FAERS Safety Report 8043256-9 (Version None)
Quarter: 2012Q1

REPORT INFORMATION
  Report Type: 
  Country: None (occurrence: None)
  Receive Date: 20120112
  Receipt Date: 20120103
  Transmission Date: 20120608
  Serious: Yes (Hospitalization)
  Sender: FDA-Public Use
  Company Number: FR-ASTRAZENECA-2012SE01099

PATIENT
  Sex: Female

DRUGS (7)
  1. ATACAND [Suspect]
     Indication: HYPERTENSION
     Route: 048
     Dates: end: 20111001
  2. BISOPROLOL FUMARATE [Concomitant]
  3. LASIX [Suspect]
     Indication: CARDIAC FAILURE
     Route: 048
     Dates: start: 20111020
  4. ALLOPURINOL [Concomitant]
  5. ACETAMINOPHEN [Concomitant]
  6. ALDACTONE [Suspect]
     Indication: HYPERTENSION
     Route: 048
     Dates: end: 20111001
  7. VOLTAREN [Concomitant]
     Indication: PAIN
     Route: 048
     Dates: end: 20111001

REACTIONS (1)
  - RENAL FAILURE ACUTE [None]
